FAERS Safety Report 5229684-5 (Version None)
Quarter: 2007Q1

REPORT INFORMATION
  Report Type: 
  Country: None (occurrence: None)
  Receive Date: 20070202
  Receipt Date: 20070124
  Transmission Date: 20070707
  Serious: Yes (Other)
  Sender: FDA-Public Use
  Company Number: CHNY2007PT00686

PATIENT
  Age: 66 Year
  Sex: Male

DRUGS (1)
  1. TAVIST [Suspect]
     Dosage: INJECTION NOS
     Dates: start: 20061031, end: 20061031

REACTIONS (1)
  - PARAESTHESIA [None]
